FAERS Safety Report 4310270-6 (Version None)
Quarter: 2004Q1

REPORT INFORMATION
  Report Type: 
  Country: None (occurrence: None)
  Receive Date: 20040301
  Receipt Date: 20031120
  Transmission Date: 20041129
  Serious: No
  Sender: FDA-Public Use
  Company Number: WAES 0311USA02431

PATIENT
  Age: 67 Year
  Sex: Male
  Weight: 73.0291 kg

DRUGS (9)
  1. ZETIA [Suspect]
     Indication: ATHEROSCLEROSIS
     Dosage: 10 MG/DAILY/PO
     Route: 048
     Dates: start: 20030310, end: 20030331
  2. ZETIA [Suspect]
     Indication: BLOOD CHOLESTEROL INCREASED
     Dosage: 10 MG/DAILY/PO
     Route: 048
     Dates: start: 20030310, end: 20030331
  3. LANOXIN [Concomitant]
  4. LASIX [Concomitant]
  5. LESCOL [Concomitant]
  6. AMIODARONE HCL [Concomitant]
  7. ASPIRIN [Concomitant]
  8. ATENOLOL [Concomitant]
  9. ISOSORBIDE [Concomitant]

REACTIONS (8)
  - ALANINE AMINOTRANSFERASE INCREASED [None]
  - ANOREXIA [None]
  - ASPARTATE AMINOTRANSFERASE INCREASED [None]
  - FEELING ABNORMAL [None]
  - HEPATIC CIRRHOSIS [None]
  - HEPATIC CYST [None]
  - NAUSEA [None]
  - WEIGHT DECREASED [None]
